FAERS Safety Report 10240306 (Version 3)
Quarter: 2014Q3

REPORT INFORMATION
  Report Type: Spontaneous
  Country: CO (occurrence: CO)
  Receive Date: 20140617
  Receipt Date: 20140916
  Transmission Date: 20150326
  Serious: Yes (Other)
  Sender: FDA-Public Use
  Company Number: CO-AMGEN INC.-COLSP2014014069

PATIENT
  Age: 50 Year
  Sex: Female
  Weight: 49 kg

DRUGS (8)
  1. ENBREL [Suspect]
     Active Substance: ETANERCEPT
     Indication: RHEUMATOID ARTHRITIS
     Dosage: 50 MG, WEEKLY
     Route: 058
     Dates: start: 2009, end: 20131230
  2. ENBREL [Suspect]
     Active Substance: ETANERCEPT
     Dosage: 50 MG, QWK
     Route: 058
     Dates: start: 20140221, end: 20140310
  3. ENBREL [Suspect]
     Active Substance: ETANERCEPT
     Dosage: 50 MG, QWK
     Route: 058
     Dates: start: 20140321
  4. METHOTREXATE [Concomitant]
     Active Substance: METHOTREXATE
     Indication: JOINT SWELLING
  5. METHOTREXATE [Concomitant]
     Active Substance: METHOTREXATE
     Indication: ARTHRITIS
  6. CARBAMAZEPINE. [Concomitant]
     Active Substance: CARBAMAZEPINE
     Indication: CONVULSION
     Dosage: 200 MG, 1X/DAY
     Route: 048
     Dates: start: 2005
  7. GLUCOSAMINA                        /00943602/ [Concomitant]
     Dosage: 10 CC, 1X/DAY
     Route: 048
  8. METHOTREXATE [Concomitant]
     Active Substance: METHOTREXATE
     Indication: ARTHRALGIA
     Dosage: 2 TABLETS ON SATURDAY AND 2 TABLETS ON SUNDAYS (WEEKLY
     Route: 048

REACTIONS (7)
  - Pruritus [Not Recovered/Not Resolved]
  - Skin infection [Not Recovered/Not Resolved]
  - Furuncle [Recovered/Resolved]
  - Arthralgia [Not Recovered/Not Resolved]
  - Arthropod bite [Recovered/Resolved]
  - Subcutaneous abscess [Not Recovered/Not Resolved]
  - Joint swelling [Not Recovered/Not Resolved]

NARRATIVE: CASE EVENT DATE: 201402
